FAERS Safety Report 4299529-9 (Version None)
Quarter: 2004Q1

REPORT INFORMATION
  Report Type: 
  Country: None (occurrence: None)
  Receive Date: 20040217
  Receipt Date: 20040203
  Transmission Date: 20041129
  Serious: Yes (Hospitalization)
  Sender: FDA-Public Use
  Company Number: 2004007504

PATIENT
  Age: 68 Year
  Sex: Female

DRUGS (3)
  1. LIPITOR [Suspect]
     Indication: METABOLIC DISORDER
     Dosage: 20 MG (DAILY) ORAL
     Route: 048
  2. RAMIPRIL [Concomitant]
  3. VERAPAMIL HCL [Concomitant]

REACTIONS (3)
  - MUSCLE NECROSIS [None]
  - PARESIS [None]
  - RHABDOMYOLYSIS [None]
